FAERS Safety Report 5632635-2 (Version None)
Quarter: 2008Q1

REPORT INFORMATION
  Report Type: 
  Country: None (occurrence: None)
  Receive Date: 20080220
  Receipt Date: 20080212
  Transmission Date: 20080703
  Serious: Yes (Hospitalization, Other)
  Sender: FDA-Public Use
  Company Number: DE-PFIZER INC-2008004952

PATIENT
  Sex: Male

DRUGS (6)
  1. NORVASC [Suspect]
     Indication: HYPERTENSION
     Dosage: DAILY DOSE:10MG
     Dates: start: 20060101, end: 20070904
  2. NORVASC [Suspect]
     Dosage: DAILY DOSE:5MG
     Route: 048
     Dates: start: 20071009, end: 20071011
  3. NORVASC [Suspect]
     Dosage: DAILY DOSE:10MG
     Route: 048
  4. METOPROLOL SUCCINATE [Concomitant]
     Route: 048
  5. MAGNESIUM [Concomitant]
  6. VITAMIN B [Concomitant]

REACTIONS (3)
  - FALL [None]
  - HEPATIC ENZYME INCREASED [None]
  - LUMBAR VERTEBRAL FRACTURE [None]
